FAERS Safety Report 8606058-8 (Version None)
Quarter: 2012Q3

REPORT INFORMATION
  Report Type: 
  Country: None (occurrence: None)
  Receive Date: 20120820
  Receipt Date: 20120806
  Transmission Date: 20120928
  Serious: Yes (Death)
  Sender: FDA-Public Use
  Company Number: SE-MYLANLABS-2012S1016407

PATIENT
  Age: 7 Decade
  Sex: Female

DRUGS (9)
  1. PREDNISONE [Suspect]
     Indication: POLYMYOSITIS
     Dosage: 40 MG/DAY
     Route: 065
  2. PREDNISONE [Suspect]
     Dosage: 2.5 MG/DAY
     Route: 065
  3. PREDNISONE [Suspect]
     Dosage: 10MG DAILY
     Route: 065
  4. PREDNISONE [Suspect]
     Dosage: 60 MG/DAY
     Route: 042
  5. METHYLPREDNISOLONE [Suspect]
     Route: 042
  6. PREDNISONE [Suspect]
     Dosage: 17.5 MG/DAY
     Route: 048
  7. METHOTREXATE [Suspect]
     Indication: POLYMYOSITIS
     Dosage: 20 MG/WEEK
     Route: 065
  8. CYCLOPHOSPHAMIDE [Suspect]
     Indication: POLYMYOSITIS
     Dosage: 100 MG/DAY
     Route: 048
  9. AZATHIOPRINE [Suspect]
     Indication: POLYMYOSITIS
     Dosage: 150 MG/DAY
     Route: 048

REACTIONS (3)
  - PROGRESSIVE MULTIFOCAL LEUKOENCEPHALOPATHY [None]
  - NAUSEA [None]
  - HEPATIC ENZYME INCREASED [None]
